FAERS Safety Report 25897941 (Version 1)
Quarter: 2025Q4

REPORT INFORMATION
  Report Type: Report from Study
  Country: US (occurrence: US)
  Receive Date: 20251008
  Receipt Date: 20251008
  Transmission Date: 20260118
  Serious: Yes (Hospitalization, Other)
  Sender: AIMMUNE
  Company Number: US-ZENPEP LLC-2025AIMT00933

PATIENT

DRUGS (2)
  1. ZENPEP [Suspect]
     Active Substance: PANCRELIPASE AMYLASE\PANCRELIPASE LIPASE\PANCRELIPASE PROTEASE
     Indication: Pancreatic failure
     Dosage: 40000-126000 UNIT CP
     Route: 048
  2. ZENPEP [Suspect]
     Active Substance: PANCRELIPASE AMYLASE\PANCRELIPASE LIPASE\PANCRELIPASE PROTEASE
     Dosage: 40000 UNITS, ONCE, LAST DOSE PRIOR TO EVENTS
     Route: 048

REACTIONS (6)
  - Impaired gastric emptying [Not Recovered/Not Resolved]
  - Dehydration [Unknown]
  - Vomiting [Unknown]
  - Weight decreased [Unknown]
  - Diarrhoea [Unknown]
  - Decreased appetite [Unknown]
